FAERS Safety Report 24928542 (Version 2)
Quarter: 2025Q1

REPORT INFORMATION
  Report Type: Report from Study
  Country: FR (occurrence: FR)
  Receive Date: 20250205
  Receipt Date: 20250226
  Transmission Date: 20250409
  Serious: Yes (Other)
  Sender: PFIZER
  Company Number: FR-GSK-FR2024GSK129502

PATIENT
  Age: 74 Year
  Sex: Female
  Weight: 100 kg

DRUGS (6)
  1. CARBOPLATIN [Suspect]
     Active Substance: CARBOPLATIN
     Indication: Cervix neoplasm
     Dates: start: 20240819
  2. CARBOPLATIN [Suspect]
     Active Substance: CARBOPLATIN
     Indication: Endometrial cancer recurrent
  3. PACLITAXEL [Suspect]
     Active Substance: PACLITAXEL
     Indication: Cervix neoplasm
     Dates: start: 20240819, end: 20240909
  4. PACLITAXEL [Suspect]
     Active Substance: PACLITAXEL
     Indication: Endometrial cancer recurrent
  5. DOSTARLIMAB [Suspect]
     Active Substance: DOSTARLIMAB
     Indication: Cervix neoplasm
     Dosage: 500 MG, EVERY 3 WEEKS
     Dates: start: 20240819
  6. DOSTARLIMAB [Suspect]
     Active Substance: DOSTARLIMAB
     Indication: Endometrial cancer recurrent

REACTIONS (2)
  - Neuropathy peripheral [Not Recovered/Not Resolved]
  - Colon operation [Recovered/Resolved]

NARRATIVE: CASE EVENT DATE: 20240927
